FAERS Safety Report 11338248 (Version 1)
Quarter: 2015Q3

REPORT INFORMATION
  Report Type: Spontaneous
  Country: US (occurrence: US)
  Receive Date: 20150803
  Receipt Date: 20150803
  Transmission Date: 20151125
  Serious: No
  Sender: FDA-Public Use
  Company Number: US-ELI_LILLY_AND_COMPANY-US201008003414

PATIENT
  Age: 40 Year
  Sex: Female

DRUGS (3)
  1. ZYPREXA [Suspect]
     Active Substance: OLANZAPINE
     Dosage: 5 MG, QOD
  2. DIURETICS [Concomitant]
     Active Substance: UNSPECIFIED INGREDIENT
  3. ZYPREXA [Suspect]
     Active Substance: OLANZAPINE
     Indication: SCHIZOPHRENIA
     Dosage: 2.5 MG, QOD

REACTIONS (2)
  - Heart rate increased [Recovered/Resolved]
  - Reaction to drug excipients [Recovered/Resolved]
